FAERS Safety Report 6285222-X (Version None)
Quarter: 2009Q3

REPORT INFORMATION
  Report Type: 
  Country: None (occurrence: None)
  Receive Date: 20090727
  Receipt Date: 20090720
  Transmission Date: 20100115
  Serious: Yes (Other)
  Sender: FDA-Public Use
  Company Number: PHEH2009US07906

PATIENT

DRUGS (2)
  1. TEKTURNA [Suspect]
  2. ACE INHIBITOR NOS [Concomitant]

REACTIONS (1)
  - HYPERNATRAEMIA [None]
